FAERS Safety Report 4884251-8 (Version None)
Quarter: 2005Q4

REPORT INFORMATION
  Report Type: 
  Country: None (occurrence: None)
  Receive Date: 20051201
  Receipt Date: 20050901
  Transmission Date: 20060501
  Serious: No
  Sender: FDA-Public Use
  Company Number: 2005PV001806

PATIENT
  Age: 68 Year
  Sex: Female
  Weight: 133.8111 kg

DRUGS (12)
  1. BYETTA [Suspect]
     Indication: DIABETES MELLITUS NON-INSULIN-DEPENDENT
     Dosage: 5 MCG; BID; SC
     Route: 058
     Dates: start: 20050811
  2. DIOVAN [Concomitant]
  3. VERAPAMIL [Concomitant]
  4. PRILOSEC [Concomitant]
  5. VOLTAREN [Concomitant]
  6. AMARYL [Concomitant]
  7. LANTUS [Concomitant]
  8. ACTOS [Concomitant]
  9. LUTEIN [Concomitant]
  10. VITAMIN E [Concomitant]
  11. CALCIUM GLUCONATE [Concomitant]
  12. VITAMIN B6 [Concomitant]

REACTIONS (10)
  - ABDOMINAL PAIN UPPER [None]
  - BLOOD GLUCOSE DECREASED [None]
  - BLOOD GLUCOSE INCREASED [None]
  - DECREASED APPETITE [None]
  - DIZZINESS [None]
  - INCREASED APPETITE [None]
  - INFLUENZA LIKE ILLNESS [None]
  - MALAISE [None]
  - NAUSEA [None]
  - WEIGHT DECREASED [None]
